FAERS Safety Report 8262349-4 (Version None)
Quarter: 2012Q2

REPORT INFORMATION
  Report Type: 
  Country: None (occurrence: None)
  Receive Date: 20120405
  Receipt Date: 20120329
  Transmission Date: 20120825
  Serious: Yes (Other)
  Sender: FDA-Public Use
  Company Number: ZA-JNJFOC-20120308255

PATIENT
  Age: 73 Year
  Sex: Female

DRUGS (2)
  1. DURAGESIC-100 [Suspect]
     Indication: PAIN
     Route: 062
  2. DURAGESIC-100 [Suspect]
     Route: 062

REACTIONS (10)
  - BLOOD PRESSURE FLUCTUATION [None]
  - CONSTIPATION [None]
  - ASTHENIA [None]
  - DYSPNOEA [None]
  - CONFUSIONAL STATE [None]
  - VOMITING [None]
  - NAUSEA [None]
  - ANGINA PECTORIS [None]
  - MALAISE [None]
  - HYPERHIDROSIS [None]
